FAERS Safety Report 18350441 (Version 7)
Quarter: 2025Q2

REPORT INFORMATION
  Report Type: Report from Study
  Country: US (occurrence: US)
  Receive Date: 20201006
  Receipt Date: 20250410
  Transmission Date: 20250717
  Serious: Yes (Other)
  Sender: TAKEDA
  Company Number: US-TAKEDA-2020TUS041299

PATIENT
  Age: 58 Year
  Sex: Male
  Weight: 81.6 kg

DRUGS (10)
  1. IXAZOMIB [Suspect]
     Active Substance: IXAZOMIB
     Indication: Plasma cell myeloma
  2. IXAZOMIB [Suspect]
     Active Substance: IXAZOMIB
  3. IXAZOMIB [Suspect]
     Active Substance: IXAZOMIB
  4. IXAZOMIB [Suspect]
     Active Substance: IXAZOMIB
  5. LENALIDOMIDE [Suspect]
     Active Substance: LENALIDOMIDE
     Indication: Product used for unknown indication
  6. LENALIDOMIDE [Suspect]
     Active Substance: LENALIDOMIDE
  7. REVLIMID [Concomitant]
     Active Substance: LENALIDOMIDE
  8. SYNTHROID [Concomitant]
     Active Substance: LEVOTHYROXINE SODIUM
     Indication: Thyroid disorder
  9. ACYCLOVIR [Concomitant]
     Active Substance: ACYCLOVIR
  10. ASPIRIN [Concomitant]
     Active Substance: ASPIRIN

REACTIONS (13)
  - Haemoglobin decreased [Recovering/Resolving]
  - Thrombocytopenia [Recovering/Resolving]
  - Red blood cell count decreased [Unknown]
  - Food poisoning [Unknown]
  - Product dose omission issue [Unknown]
  - Infection [Not Recovered/Not Resolved]
  - Sinusitis [Recovered/Resolved]
  - Illness [Not Recovered/Not Resolved]
  - White blood cell count decreased [Unknown]
  - Arthralgia [Unknown]
  - Nasopharyngitis [Unknown]
  - Bronchitis [Not Recovered/Not Resolved]
  - Diarrhoea [Unknown]

NARRATIVE: CASE EVENT DATE: 20210125
